FAERS Safety Report 8245367-1 (Version None)
Quarter: 2012Q1

REPORT INFORMATION
  Report Type: 
  Country: None (occurrence: None)
  Receive Date: 20120329
  Receipt Date: 20120320
  Transmission Date: 20120608
  Serious: Yes (Other)
  Sender: FDA-Public Use
  Company Number: ES-ALLERGAN-1204049US

PATIENT
  Age: 70 Year
  Sex: Female

DRUGS (1)
  1. OZURDEX [Suspect]
     Indication: OCULAR VASCULAR DISORDER
     Dosage: 0.7 MG, SINGLE

REACTIONS (1)
  - ENDOPHTHALMITIS [None]
